FAERS Safety Report 18226861 (Version 1)
Quarter: 2020Q3

REPORT INFORMATION
  Report Type: Spontaneous
  Country: US (occurrence: US)
  Receive Date: 20200902
  Receipt Date: 20200902
  Transmission Date: 20201103
  Serious: Yes (Death)
  Sender: FDA-Public Use
  Company Number: None

PATIENT
  Age: 55 Year
  Sex: Male

DRUGS (2)
  1. ADVANCED HAND SANITIZER [Suspect]
     Active Substance: ALCOHOL
  2. BERSIH HAND SANITIZER GEL FRAGRANCE FREE [Concomitant]
     Active Substance: ALCOHOL

REACTIONS (2)
  - Drug abuse [None]
  - Alcohol abuse [None]
